FAERS Safety Report 9844363 (Version 1)
Quarter: 2014Q1

REPORT INFORMATION
  Report Type: Spontaneous
  Country: US (occurrence: US)
  Receive Date: 20140127
  Receipt Date: 20140127
  Transmission Date: 20141002
  Serious: Yes (Other)
  Sender: FDA-Public Use
  Company Number: CHPA2014US001080

PATIENT
  Age: 86 Year
  Sex: Male

DRUGS (1)
  1. ACETYLSALICYLIC ACID [Suspect]
     Dosage: UNK, UNK
     Route: 048

REACTIONS (3)
  - Swelling [Unknown]
  - Drug hypersensitivity [Unknown]
  - Urticaria [Unknown]
